FAERS Safety Report 7113812-0 (Version None)
Quarter: 2010Q4

REPORT INFORMATION
  Report Type: 
  Country: None (occurrence: None)
  Receive Date: 20101119
  Receipt Date: 20101108
  Transmission Date: 20110411
  Serious: Yes (Other)
  Sender: FDA-Public Use
  Company Number: KR-JNJFOC-20101103421

PATIENT
  Sex: Female

DRUGS (11)
  1. GOLIMUMAB [Suspect]
     Route: 058
  2. GOLIMUMAB [Suspect]
     Indication: RHEUMATOID ARTHRITIS
     Route: 058
  3. METHOTREXATE [Suspect]
     Indication: RHEUMATOID ARTHRITIS
     Dosage: SEVEN 2.5 MG CAPSULES
     Route: 048
  4. METHOTREXATE [Suspect]
     Dosage: SEVEN 2.5 MG CAPSULES
     Route: 048
  5. METHOTREXATE [Concomitant]
     Route: 048
  6. METHOTREXATE [Concomitant]
     Route: 048
  7. METHOTREXATE [Concomitant]
     Route: 048
  8. FOLIC ACID [Concomitant]
     Route: 048
  9. AMLODIPINE BESYLATE [Concomitant]
     Route: 048
  10. REBAMIPIDE [Concomitant]
     Route: 048
  11. ALENDRONATE SODIUM [Concomitant]
     Route: 048

REACTIONS (1)
  - GASTRIC CANCER [None]
